FAERS Safety Report 9511606 (Version 1)
Quarter: 2013Q3

REPORT INFORMATION
  Report Type: Report from Study
  Country: BR (occurrence: BR)
  Receive Date: 20130910
  Receipt Date: 20130910
  Transmission Date: 20140515
  Serious: Yes (Death)
  Sender: FDA-Public Use
  Company Number: PHHY2013BR098930

PATIENT
  Sex: Male

DRUGS (7)
  1. DIOVAN HCT [Suspect]
     Dosage: 1 DF, (160 MG VALS AND 12.5 MG HYDR)
  2. SOMALGIN [Concomitant]
  3. CONCOR [Concomitant]
  4. DIOSMIN [Concomitant]
  5. FUROSEMIDE [Concomitant]
  6. LOSARTAN [Concomitant]
  7. ASPIRIN [Concomitant]

REACTIONS (1)
  - Death [Fatal]
